FAERS Safety Report 9418211 (Version 2)
Quarter: 2013Q4

REPORT INFORMATION
  Report Type: Spontaneous
  Country: FR (occurrence: FR)
  Receive Date: 20130724
  Receipt Date: 20131108
  Transmission Date: 20140711
  Serious: Yes (Other)
  Sender: FDA-Public Use
  Company Number: CHPA2013FR011502

PATIENT
  Age: 52 Year
  Sex: Male

DRUGS (1)
  1. NICOTINELL NICOTINE [Suspect]
     Indication: SMOKING CESSATION THERAPY
     Dosage: 20 TO 36 DF, QD
     Route: 048
     Dates: start: 2012

REACTIONS (6)
  - Rectal haemorrhage [Unknown]
  - Drug dependence [Not Recovered/Not Resolved]
  - Haemorrhoids [Unknown]
  - Diarrhoea [Unknown]
  - Incorrect dose administered [Unknown]
  - Incorrect drug administration duration [Unknown]
